FAERS Safety Report 16656846 (Version 2)
Quarter: 2019Q4

REPORT INFORMATION
  Report Type: Report from Study
  Country: None (occurrence: US)
  Receive Date: 20190801
  Receipt Date: 20191002
  Transmission Date: 20200122
  Serious: Yes (Hospitalization)
  Sender: FDA-Public Use
  Company Number: US-ABBVIE-19K-163-2826730-00

PATIENT
  Age: 73 Year
  Sex: Female

DRUGS (3)
  1. HUMIRA [Suspect]
     Active Substance: ADALIMUMAB
     Dosage: FROM DAY 8
     Route: 058
     Dates: start: 201904, end: 2019
  2. HUMIRA [Suspect]
     Active Substance: ADALIMUMAB
     Route: 058
     Dates: start: 2019
  3. HUMIRA [Suspect]
     Active Substance: ADALIMUMAB
     Indication: PSORIASIS
     Dosage: DAY 1
     Route: 058
     Dates: start: 201904, end: 201904

REACTIONS (16)
  - Feeling hot [Unknown]
  - Pain [Recovering/Resolving]
  - Blood potassium increased [Unknown]
  - Erythema [Recovered/Resolved]
  - Chills [Unknown]
  - General physical condition abnormal [Not Recovered/Not Resolved]
  - Drug ineffective [Unknown]
  - Helplessness [Not Recovered/Not Resolved]
  - Pruritus [Not Recovered/Not Resolved]
  - Skin irritation [Not Recovered/Not Resolved]
  - Injection site pain [Unknown]
  - Skin infection [Recovered/Resolved]
  - Psoriasis [Recovering/Resolving]
  - Renal failure [Unknown]
  - Frustration tolerance decreased [Not Recovered/Not Resolved]
  - Emotional distress [Not Recovered/Not Resolved]

NARRATIVE: CASE EVENT DATE: 2019
